FAERS Safety Report 6655325-6 (Version None)
Quarter: 2010Q1

REPORT INFORMATION
  Report Type: 
  Country: None (occurrence: None)
  Receive Date: 20100329
  Receipt Date: 20100315
  Transmission Date: 20100710
  Serious: Yes (Hospitalization)
  Sender: FDA-Public Use
  Company Number: GB-CELGENEUS-167-50794-10031425

PATIENT
  Sex: Male
  Weight: 56.9 kg

DRUGS (10)
  1. VIDAZA [Suspect]
     Indication: ACUTE MYELOID LEUKAEMIA
     Route: 065
  2. SODIUM VALPROATE [Suspect]
     Indication: ACUTE MYELOID LEUKAEMIA
     Route: 065
  3. ATRA [Suspect]
     Indication: ACUTE MYELOID LEUKAEMIA
     Route: 065
  4. THEOPHYLLINE [Suspect]
     Indication: ACUTE MYELOID LEUKAEMIA
     Route: 065
  5. ACYCLOVIR SODIUM [Concomitant]
     Indication: PROPHYLAXIS
     Route: 048
     Dates: start: 20090824
  6. CIPROFLOXACIN [Concomitant]
     Indication: PROPHYLAXIS
     Route: 048
     Dates: start: 20090824
  7. SIMVASTATIN [Concomitant]
     Route: 048
     Dates: start: 20000101
  8. LERCANIDIPINE [Concomitant]
     Indication: HYPERTENSION
     Route: 048
     Dates: start: 20000101
  9. METROCLOPAMIDE [Concomitant]
     Indication: NAUSEA
     Route: 048
     Dates: start: 20090824
  10. CO AMILOFRUSE [Concomitant]
     Indication: HYPERTENSION
     Dosage: 5/40 MG
     Route: 048
     Dates: start: 20000101

REACTIONS (2)
  - CONSTIPATION [None]
  - URINARY RETENTION [None]
